FAERS Safety Report 5500099-5 (Version None)
Quarter: 2007Q4

REPORT INFORMATION
  Report Type: 
  Country: None (occurrence: None)
  Receive Date: 20071024
  Receipt Date: 20071009
  Transmission Date: 20080405
  Serious: Yes (Other)
  Sender: FDA-Public Use
  Company Number: 2007S1009662

PATIENT
  Age: 57 Year
  Sex: Female

DRUGS (1)
  1. ENDEP (AMITRIPTYLINE HYDROCHLORIDE) (25 MG) [Suspect]
     Indication: BURNING SENSATION
     Dosage: 25 MG
     Dates: start: 20071004

REACTIONS (5)
  - AGGRESSION [None]
  - DRY MOUTH [None]
  - FATIGUE [None]
  - SELF-INJURIOUS IDEATION [None]
  - TEARFULNESS [None]
